FAERS Safety Report 8767584 (Version 3)
Quarter: 2012Q4

REPORT INFORMATION
  Report Type: Report from Study
  Country: JP (occurrence: JP)
  Receive Date: 20120904
  Receipt Date: 20121026
  Transmission Date: 20130627
  Serious: Yes (Hospitalization)
  Sender: FDA-Public Use
  Company Number: JP-EISAI INC-E7389-01988-CLI-JP

PATIENT
  Age: 52 Year
  Sex: Female
  Weight: 48 kg

DRUGS (15)
  1. HALAVEN [Suspect]
     Indication: BREAST CANCER RECURRENT
     Route: 041
     Dates: start: 20111122
  2. HALAVEN [Suspect]
     Indication: METASTASES TO LYMPH NODES
  3. HALAVEN [Suspect]
     Indication: METASTASES TO LIVER
  4. HALAVEN [Suspect]
     Indication: METASTASES TO BONE
  5. HALAVEN [Suspect]
     Indication: METASTASES TO BRAIN
  6. HALAVEN [Suspect]
     Indication: METASTASES TO PLEURA
  7. PREGABALIN [Concomitant]
     Route: 048
  8. OMEPRAL [Concomitant]
     Route: 048
  9. MAGMITT [Concomitant]
     Route: 048
  10. FENTOS [Concomitant]
     Route: 065
  11. DEPAS [Concomitant]
     Route: 048
  12. NAIXAN [Concomitant]
     Route: 048
  13. PRIMPERAN [Concomitant]
     Route: 065
  14. BUSCOPAN [Concomitant]
     Route: 065
  15. CIPROXAN [Concomitant]
     Indication: PROPHYLAXIS
     Route: 048

REACTIONS (3)
  - Gamma-glutamyltransferase increased [Not Recovered/Not Resolved]
  - Lymphopenia [Recovered/Resolved]
  - Febrile neutropenia [Recovering/Resolving]
